FAERS Safety Report 4542297-3 (Version None)
Quarter: 2004Q4

REPORT INFORMATION
  Report Type: 
  Country: None (occurrence: None)
  Receive Date: 20041227
  Receipt Date: 20041213
  Transmission Date: 20050328
  Serious: Yes (Life-Threatening, Hospitalization)
  Sender: FDA-Public Use
  Company Number: 211222

PATIENT
  Age: 59 Year
  Sex: Male
  Weight: 67.4 kg

DRUGS (4)
  1. AVASTIN [Suspect]
     Indication: COLORECTAL CANCER METASTATIC
     Dosage: 5 MG/K, Q2W, INTRAVENOUS
     Route: 042
     Dates: start: 20041116, end: 20041130
  2. OXALIPLATIN (OXALIPLATIN) [Concomitant]
  3. FLUOROURACIL [Concomitant]
  4. LEUCOVORIN CALCIUM [Concomitant]

REACTIONS (4)
  - ASTHENIA [None]
  - COLON GANGRENE [None]
  - FAILURE TO THRIVE [None]
  - WOUND INFECTION [None]
